FAERS Safety Report 9876519 (Version 2)
Quarter: 2014Q1

REPORT INFORMATION
  Report Type: Other
  Country: US (occurrence: US)
  Receive Date: 20140206
  Receipt Date: 20140206
  Transmission Date: 20141002
  Serious: No
  Sender: FDA-Public Use
  Company Number: US-ACORDA-ACO_35351_2013

PATIENT
  Sex: Female

DRUGS (4)
  1. AMPYRA [Suspect]
     Indication: GAIT DISTURBANCE
     Dosage: 10 MG, QD
     Route: 048
     Dates: start: 2012, end: 20120521
  2. AMPYRA [Suspect]
     Dosage: 10 MG, BID
     Route: 065
     Dates: start: 20120522, end: 2012
  3. AMPYRA [Suspect]
     Dosage: UNK
     Dates: start: 2012, end: 2012
  4. TYSABRI [Concomitant]
     Indication: MULTIPLE SCLEROSIS

REACTIONS (2)
  - Weight decreased [Recovered/Resolved]
  - Abdominal pain upper [Recovered/Resolved]
